FAERS Safety Report 22613866 (Version 1)
Quarter: 2023Q2

REPORT INFORMATION
  Report Type: Spontaneous
  Country: US (occurrence: US)
  Receive Date: 20230619
  Receipt Date: 20230619
  Transmission Date: 20230721
  Serious: No
  Sender: FDA-Public Use
  Company Number: US-drreddys-SPO/USA/23/0166149

PATIENT
  Age: 38 Year
  Sex: Female

DRUGS (3)
  1. ACCUTANE [Suspect]
     Active Substance: ISOTRETINOIN
     Indication: Product used for unknown indication
     Dosage: RMA ISSUE DATE: 25 OCTOBER 2022 02:58:08 PM, 01 DECEMBER 2022 06:23:10 PM, 04 JANUARY 2023 05:22:18
  2. ACCUTANE [Suspect]
     Active Substance: ISOTRETINOIN
     Dosage: RMA ISSUE DATE: 09 FEBRUARY 2023 03:37:43 PM
  3. ACCUTANE [Suspect]
     Active Substance: ISOTRETINOIN
     Dosage: RMA ISSUE DATE: 28 MARCH 2023 12:40:44 PM, 26 APRIL 2023 11:28:56 AM

REACTIONS (1)
  - Alopecia [Unknown]
